FAERS Safety Report 19568780 (Version 1)
Quarter: 2021Q3

REPORT INFORMATION
  Report Type: Spontaneous
  Country: US (occurrence: US)
  Receive Date: 20210714
  Receipt Date: 20210714
  Transmission Date: 20211014
  Serious: Yes (Disabling, Other)
  Sender: FDA-Public Use
  Company Number: US-SA-2021SA227583

PATIENT
  Age: 64 Year
  Sex: Male

DRUGS (1)
  1. ZANTAC [Suspect]
     Active Substance: RANITIDINE HYDROCHLORIDE
     Indication: DYSPEPSIA
     Dosage: 150 MG, QD
     Dates: start: 201301, end: 201310

REACTIONS (9)
  - Prostate cancer [Unknown]
  - Dyspnoea [Unknown]
  - Bladder cancer [Unknown]
  - Renal impairment [Unknown]
  - Hypokinesia [Unknown]
  - Eating disorder [Unknown]
  - Peroneal nerve palsy [Unknown]
  - Gait disturbance [Unknown]
  - Dysphonia [Unknown]

NARRATIVE: CASE EVENT DATE: 20150801
